FAERS Safety Report 5331126-6 (Version None)
Quarter: 2007Q2

REPORT INFORMATION
  Report Type: 
  Country: None (occurrence: None)
  Receive Date: 20070522
  Receipt Date: 20070515
  Transmission Date: 20071010
  Serious: Yes (Hospitalization)
  Sender: FDA-Public Use
  Company Number: DK-AVENTIS-200615571EU

PATIENT
  Sex: Female

DRUGS (2)
  1. RILUTEK [Suspect]
     Indication: AMYOTROPHIC LATERAL SCLEROSIS
     Route: 048
     Dates: start: 20060501, end: 20060620
  2. ATROPINE [Concomitant]
     Dosage: DOSE: UNK

REACTIONS (2)
  - ANAEMIA [None]
  - MELAENA [None]
